FAERS Safety Report 26019649 (Version 1)
Quarter: 2025Q4

REPORT INFORMATION
  Report Type: Spontaneous
  Country: CN (occurrence: CN)
  Receive Date: 20251110
  Receipt Date: 20251110
  Transmission Date: 20260118
  Serious: Yes (Hospitalization, Other)
  Sender: AIPING PHARMACEUTICAL
  Company Number: CN-AIPING-2025AILIT00185

PATIENT
  Age: 36 Year
  Sex: Female

DRUGS (3)
  1. METOCLOPRAMIDE [Suspect]
     Active Substance: METOCLOPRAMIDE
     Indication: Product used for unknown indication
     Dosage: 70 TABLETS
     Route: 048
  2. CARBAZOCHROME [Suspect]
     Active Substance: CARBAZOCHROME
     Indication: Product used for unknown indication
     Dosage: 10 TABLETS
     Route: 048
  3. COENZYME Q10 [Suspect]
     Active Substance: DIETARY SUPPLEMENT\UBIDECARENONE
     Indication: Product used for unknown indication
     Dosage: 10 TABLETS
     Route: 048

REACTIONS (7)
  - Toxic encephalopathy [Recovered/Resolved]
  - Psychiatric symptom [Recovered/Resolved]
  - Behaviour disorder [Recovered/Resolved]
  - Extrapyramidal disorder [Recovered/Resolved]
  - Suicidal ideation [Unknown]
  - Toxicity to various agents [Unknown]
  - Intentional overdose [Unknown]
